FAERS Safety Report 7553556-4 (Version None)
Quarter: 2011Q2

REPORT INFORMATION
  Report Type: 
  Country: None (occurrence: None)
  Receive Date: 20110617
  Receipt Date: 20110125
  Transmission Date: 20111010
  Serious: Yes (Hospitalization, Other)
  Sender: FDA-Public Use
  Company Number: US-BAYER-201038776NA

PATIENT
  Age: 29 Year
  Sex: Female
  Weight: 72 kg

DRUGS (3)
  1. YASMIN [Suspect]
     Indication: UTERINE LEIOMYOMA
  2. YASMIN [Suspect]
     Indication: ENDOMETRIOSIS
  3. YASMIN [Suspect]
     Indication: ORAL CONTRACEPTION
     Route: 048
     Dates: start: 20060301, end: 20060413

REACTIONS (1)
  - PULMONARY EMBOLISM [None]
